FAERS Safety Report 4872751-6 (Version None)
Quarter: 2006Q1

REPORT INFORMATION
  Report Type: 
  Country: None (occurrence: None)
  Receive Date: 20060103
  Receipt Date: 20051220
  Transmission Date: 20060701
  Serious: Yes (Hospitalization)
  Sender: FDA-Public Use
  Company Number: USA0507101848

PATIENT
  Age: 78 Year
  Sex: Female

DRUGS (4)
  1. FORTEO [Suspect]
     Indication: OSTEOPOROSIS
     Dosage: 20 U, DAILY (1/D), UNK
     Dates: start: 20050512, end: 20051001
  2. CALCIUM (CALCIUM) [Concomitant]
  3. FORTEO PEN, 250MCG/ML(3ML) (FORTEO PEN 250MCG/ML (3ML)) PEN, DISPOSABL [Concomitant]
  4. FORTEO PEN, 250MCG/ML (3ML) (FORTEO PNE 250MCG/ML (3ML)) PEN, DISPOSAB [Concomitant]

REACTIONS (10)
  - CATARACT [None]
  - CHOLELITHIASIS [None]
  - CONDITION AGGRAVATED [None]
  - CYSTITIS [None]
  - DRUG INEFFECTIVE [None]
  - GLOSSODYNIA [None]
  - LIP PAIN [None]
  - ORAL DISCOMFORT [None]
  - PHARMACEUTICAL PRODUCT COMPLAINT [None]
  - SWELLING FACE [None]
